FAERS Safety Report 9465321 (Version 2)
Quarter: 2013Q3

REPORT INFORMATION
  Report Type: Report from Study
  Country: JP (occurrence: JP)
  Receive Date: 20130820
  Receipt Date: 20130917
  Transmission Date: 20140515
  Serious: Yes (Death)
  Sender: FDA-Public Use
  Company Number: JP-ROCHE-1262814

PATIENT
  Age: 85 Year
  Sex: Female
  Weight: 40 kg

DRUGS (7)
  1. METHOXY POLYETHYLENE GLYCOL-EPOETIN BETA [Suspect]
     Indication: NEPHROGENIC ANAEMIA
     Route: 058
     Dates: start: 20120804, end: 20121005
  2. WARFARIN [Concomitant]
     Route: 048
     Dates: end: 20121027
  3. FERROMIA [Concomitant]
     Indication: NEPHROSCLEROSIS
     Route: 048
     Dates: end: 20121027
  4. ARTIST [Concomitant]
     Route: 048
     Dates: end: 20121027
  5. OLMETEC [Concomitant]
     Route: 048
     Dates: end: 20121027
  6. FEBURIC [Concomitant]
     Route: 048
     Dates: end: 20121027
  7. DIART [Concomitant]
     Route: 048
     Dates: end: 20121027

REACTIONS (1)
  - Cardiac tamponade [Fatal]
